FAERS Safety Report 8502788-7 (Version None)
Quarter: 2012Q3

REPORT INFORMATION
  Report Type: 
  Country: None (occurrence: None)
  Receive Date: 20120706
  Receipt Date: 20120706
  Transmission Date: 20120928
  Serious: Yes (Other)
  Sender: FDA-Public Use
  Company Number: None

PATIENT
  Age: 30 Year
  Sex: Female
  Weight: 86.1834 kg

DRUGS (4)
  1. WELLBUTRIN XL [Concomitant]
  2. OXYCODONE HCL [Concomitant]
  3. NUCYNTA ER [Suspect]
     Indication: PAIN
     Dosage: 100MG BID PO
     Route: 048
     Dates: start: 20120701, end: 20120701
  4. REQUIP [Concomitant]

REACTIONS (3)
  - HYPOAESTHESIA [None]
  - GRIP STRENGTH DECREASED [None]
  - PARAESTHESIA [None]
